FAERS Safety Report 15937042 (Version 1)
Quarter: 2019Q1

REPORT INFORMATION
  Report Type: Spontaneous
  Country: US (occurrence: US)
  Receive Date: 20190208
  Receipt Date: 20190208
  Transmission Date: 20190417
  Serious: Yes (Hospitalization, Other)
  Sender: FDA-Public Use
  Company Number: US-RECKITT BENCKISER HEALTHCARE INT LIMITED-RB-81444-2019

PATIENT
  Sex: Female

DRUGS (1)
  1. MUCINEX [Suspect]
     Active Substance: GUAIFENESIN
     Indication: COUGH
     Dosage: 600 MILLIGRAM, TOOK 600 MG OF PRODUCT, ONE AT 2PM AND THE OTHER AT 10 PM SAME DAY
     Route: 065

REACTIONS (8)
  - Syncope [Recovering/Resolving]
  - Vomiting [Recovering/Resolving]
  - Liver function test increased [Recovering/Resolving]
  - Inappropriate schedule of product administration [Recovering/Resolving]
  - Rash erythematous [Recovering/Resolving]
  - Blood pressure abnormal [Recovering/Resolving]
  - Hypersensitivity [Recovering/Resolving]
  - Hypertension [Recovering/Resolving]
